FAERS Safety Report 8523856-X (Version None)
Quarter: 2012Q3

REPORT INFORMATION
  Report Type: 
  Country: None (occurrence: None)
  Receive Date: 20120720
  Receipt Date: 20120709
  Transmission Date: 20120928
  Serious: Yes (Other)
  Sender: FDA-Public Use
  Company Number: JP-AMGEN-JPNCT2012044816

PATIENT
  Age: 60 Year
  Sex: Female
  Weight: 53 kg

DRUGS (12)
  1. DARBEPOETIN ALFA - KHK [Suspect]
     Dosage: 30 MUG, UNK
     Route: 040
     Dates: start: 20111024, end: 20111024
  2. DARBEPOETIN ALFA - KHK [Suspect]
     Dosage: 30 MUG, UNK
     Route: 040
     Dates: start: 20111128, end: 20111226
  3. KREMEZIN [Concomitant]
     Dosage: UNCERTAINTY
     Route: 048
  4. ALLOPURINOL [Concomitant]
     Dosage: UNCERTAINTY
     Route: 048
  5. FEBURIC [Concomitant]
     Dosage: UNCERTAINTY
     Route: 048
  6. LOSARTAN POTASSIUM [Concomitant]
     Dosage: UNCERTAINTY
     Route: 048
  7. ASPIRIN [Concomitant]
     Dosage: UNCERTAINTY
     Route: 048
  8. DARBEPOETIN ALFA - KHK [Suspect]
     Indication: NEPHROGENIC ANAEMIA
     Dosage: 30 MUG, UNK
     Route: 040
     Dates: start: 20110725, end: 20110725
  9. DARBEPOETIN ALFA - KHK [Suspect]
     Dosage: 30 MUG, UNK
     Route: 040
     Dates: start: 20110815, end: 20110815
  10. DARBEPOETIN ALFA - KHK [Suspect]
     Dosage: 30 MUG, UNK
     Route: 040
     Dates: start: 20120116
  11. DARBEPOETIN ALFA - KHK [Suspect]
     Dosage: 30 MUG, UNK
     Route: 058
     Dates: start: 20110912, end: 20110912
  12. ATELEC [Concomitant]
     Dosage: UNCERTAINTY
     Route: 048

REACTIONS (2)
  - HYPERURICAEMIA [None]
  - HYPERTENSION [None]
